FAERS Safety Report 8436605-0 (Version None)
Quarter: 2012Q2

REPORT INFORMATION
  Report Type: 
  Country: None (occurrence: None)
  Receive Date: 20120608
  Receipt Date: 20120608
  Transmission Date: 20120825
  Serious: Yes (Life-Threatening, Hospitalization, Disabling, Other)
  Sender: FDA-Public Use
  Company Number: None

PATIENT
  Age: 69 Year
  Sex: Male
  Weight: 88 kg

DRUGS (3)
  1. KOGENATE [Suspect]
     Indication: FACTOR VIII DEFICIENCY
     Dosage: 4-5UNITS/KG/HR CONTINUOUS INFUSION IV DRIP
     Route: 041
     Dates: start: 20120208, end: 20120214
  2. KOGENATE [Suspect]
     Indication: HAEMORRHAGE
     Dosage: 4-5UNITS/KG/HR CONTINUOUS INFUSION IV DRIP
     Route: 041
     Dates: start: 20120208, end: 20120214
  3. KOGENATE [Suspect]
     Dosage: 6UNITS/KG/HR CONTINUOUS INFUSION IV DRIP
     Route: 041
     Dates: start: 20120301, end: 20120302

REACTIONS (9)
  - HAEMORRHAGE [None]
  - NO THERAPEUTIC RESPONSE [None]
  - CHEST PAIN [None]
  - HAEMARTHROSIS [None]
  - CORONARY ARTERY DISEASE [None]
  - HAEMATURIA [None]
  - WEIGHT BEARING DIFFICULTY [None]
  - FACTOR VIII INHIBITION [None]
  - PRODUCT QUALITY ISSUE [None]
